FAERS Safety Report 17521539 (Version 2)
Quarter: 2020Q3

REPORT INFORMATION
  Report Type: Report from Study
  Country: FR (occurrence: FR)
  Receive Date: 20200310
  Receipt Date: 20200724
  Transmission Date: 20201102
  Serious: Yes (Congenital Anomaly, Other)
  Sender: FDA-Public Use
  Company Number: FR-009507513-2003FRA000350

PATIENT
  Sex: Female
  Weight: 2.46 kg

DRUGS (6)
  1. ISENTRESS [Suspect]
     Active Substance: RALTEGRAVIR POTASSIUM
     Dosage: 1200 MILLIGRAM, QD
     Route: 064
     Dates: start: 20190923, end: 20191226
  2. PREZISTA [Suspect]
     Active Substance: DARUNAVIR ETHANOLATE
     Dosage: 800 MILLIGRAM, QD
     Route: 064
     Dates: start: 20190521, end: 20191226
  3. REYATAZ [Suspect]
     Active Substance: ATAZANAVIR SULFATE
     Dosage: 300 MILLIGRAM, QD
     Route: 064
     Dates: start: 20190726, end: 20190815
  4. BACTRIM [Suspect]
     Active Substance: SULFAMETHOXAZOLE\TRIMETHOPRIM
     Dosage: 3 DOSAGE FORM, QD
     Route: 064
     Dates: start: 20190923, end: 20191226
  5. TRUVADA [Suspect]
     Active Substance: EMTRICITABINE\TENOFOVIR DISOPROXIL FUMARATE
     Dosage: 445 MILLIGRAM, QD
     Route: 064
     Dates: start: 20190521, end: 20191226
  6. NORVIR [Suspect]
     Active Substance: RITONAVIR
     Dosage: 100 MILLIGRAM, QD
     Route: 064
     Dates: start: 20190521, end: 20191226

REACTIONS (1)
  - Ventricular septal defect [Not Recovered/Not Resolved]

NARRATIVE: CASE EVENT DATE: 20191226
